FAERS Safety Report 5231269-1 (Version None)
Quarter: 2007Q1

REPORT INFORMATION
  Report Type: 
  Country: None (occurrence: None)
  Receive Date: 20070205
  Receipt Date: 20070205
  Transmission Date: 20070707
  Serious: Yes (Other)
  Sender: FDA-Public Use
  Company Number: None

PATIENT
  Age: 38 Year
  Sex: Male
  Weight: 114 kg

DRUGS (1)
  1. OCUFLOX [Suspect]
     Indication: INFECTION
     Dosage: 2 DROPS 4 X DAILY EYE DROP
     Route: 047
     Dates: start: 20070109, end: 20070113

REACTIONS (3)
  - APPLICATION SITE INFLAMMATION [None]
  - CONJUNCTIVITIS ALLERGIC [None]
  - EYE INFLAMMATION [None]
